FAERS Safety Report 6984876-X (Version None)
Quarter: 2010Q3

REPORT INFORMATION
  Report Type: 
  Country: None (occurrence: None)
  Receive Date: 20100915
  Receipt Date: 20100908
  Transmission Date: 20110219
  Serious: Yes (Other)
  Sender: FDA-Public Use
  Company Number: US-SANOFI-AVENTIS-2010SA041844

PATIENT
  Age: 81 Year
  Sex: Female
  Weight: 57 kg

DRUGS (14)
  1. MULTAQ [Suspect]
     Route: 048
     Dates: start: 20100211, end: 20100722
  2. AMIODARONE HCL [Concomitant]
     Dates: start: 20091216, end: 20100211
  3. AMIODARONE HCL [Concomitant]
     Dates: start: 20100723
  4. REMICADE [Concomitant]
     Indication: ARTHRITIS
     Dosage: EVERY EIGHT WEEKS
  5. METHOTREXATE [Concomitant]
     Indication: ARTHRITIS
  6. VERAPAMIL [Concomitant]
     Indication: BLOOD PRESSURE
     Route: 048
     Dates: end: 20100806
  7. SIMVASTATIN [Concomitant]
  8. MULTI-VITAMINS [Concomitant]
  9. ASCORBIC ACID [Concomitant]
  10. TRIAMTERENE [Concomitant]
     Dosage: 75/50MG 1/2 TABLET DAILY
  11. BENEFIBER [Concomitant]
     Dates: start: 20100211
  12. CALCIUM CITRATE [Concomitant]
     Dates: start: 20060817
  13. DULCOLAX [Concomitant]
     Dosage: 2 TABS PER DAY BY MOUTH
     Dates: start: 20070314
  14. FOLIC ACID [Concomitant]
     Dates: start: 20100113

REACTIONS (3)
  - BLOOD CREATININE INCREASED [None]
  - OEDEMA PERIPHERAL [None]
  - RENAL IMPAIRMENT [None]
